FAERS Safety Report 4906567-9 (Version None)
Quarter: 2006Q1

REPORT INFORMATION
  Report Type: 
  Country: None (occurrence: None)
  Receive Date: 20060203
  Receipt Date: 20060123
  Transmission Date: 20060701
  Serious: Yes (Hospitalization)
  Sender: FDA-Public Use
  Company Number: HQWYE491724JAN06

PATIENT
  Age: 58 Year
  Sex: Male

DRUGS (11)
  1. RAPAMUNE [Suspect]
     Indication: PROPHYLAXIS AGAINST TRANSPLANT REJECTION
     Dosage: 2 MG 1X PER 1 DAY ORAL
     Route: 048
     Dates: start: 20050620
  2. CALCIPARINE [Suspect]
     Dates: start: 20051230, end: 20060103
  3. PREDNISONE [Suspect]
     Indication: PROPHYLAXIS AGAINST TRANSPLANT REJECTION
     Dosage: 60 MG 1X PER 1 DAY ORAL
     Route: 048
     Dates: start: 20050325
  4. MYCOPHENOLATE MOFETIL (MYCOPHENOLATE MOFETIL) [Concomitant]
  5. ZENAPAX (DACLIZUMAB) [Concomitant]
  6. CYCLOSPORINE [Concomitant]
  7. CORTICOSTEROID NOS (CORTICOSTEROID NOS) [Concomitant]
  8. FOSCARNET [Concomitant]
  9. LEDERFOLIN (CALCIUM FOLINATE) [Concomitant]
  10. BACTRIM [Concomitant]
  11. AMLODIPINE BESYLATE [Concomitant]

REACTIONS (4)
  - ANOREXIA [None]
  - DYSPHAGIA [None]
  - MOUTH ULCERATION [None]
  - ULCER HAEMORRHAGE [None]
